FAERS Safety Report 6504273-0 (Version None)
Quarter: 2009Q4

REPORT INFORMATION
  Report Type: 
  Country: None (occurrence: None)
  Receive Date: 20091217
  Receipt Date: 20091208
  Transmission Date: 20100525
  Serious: Yes (Hospitalization)
  Sender: FDA-Public Use
  Company Number: US-PFIZER INC-2009307698

PATIENT
  Sex: Male
  Weight: 74.6 kg

DRUGS (4)
  1. GLIPIZIDE [Suspect]
     Dosage: UNK
     Route: 065
  2. RAD 001 [Suspect]
     Indication: RENAL TRANSPLANT
     Dosage: UNK
     Route: 048
     Dates: start: 20060309
  3. NEORAL [Concomitant]
     Dosage: UNK
     Dates: start: 20060309
  4. PREDNISONE [Concomitant]
     Dosage: UNK
     Dates: start: 20060309

REACTIONS (2)
  - HYPOGLYCAEMIA [None]
  - HYPOPHAGIA [None]
